FAERS Safety Report 9745564 (Version 3)
Quarter: 2014Q2

REPORT INFORMATION
  Report Type: Report from Study
  Country: GB (occurrence: GB)
  Receive Date: 20131211
  Receipt Date: 20140619
  Transmission Date: 20141212
  Serious: Yes (Hospitalization)
  Sender: FDA-Public Use
  Company Number: GB-TEVA-449888USA

PATIENT
  Age: 77 Year
  Sex: Female
  Weight: 66 kg

DRUGS (11)
  1. BENDAMUSTINE [Suspect]
     Indication: MANTLE CELL LYMPHOMA
     Route: 042
     Dates: start: 20131127
  2. BENDAMUSTINE [Suspect]
     Route: 042
     Dates: start: 20140102
  3. RITUXIMAB [Suspect]
     Indication: MANTLE CELL LYMPHOMA
     Route: 042
     Dates: start: 20131127
  4. RITUXIMAB [Suspect]
     Route: 042
     Dates: start: 20140102
  5. IBRUTINIB/PLACEBO [Suspect]
     Indication: MANTLE CELL LYMPHOMA
     Route: 048
     Dates: start: 20131106
  6. ACYCLOVIR [Concomitant]
     Dosage: 400 MILLIGRAM DAILY;
     Route: 048
  7. SIMVASTATIN [Concomitant]
     Dosage: 20 MILLIGRAM DAILY;
     Route: 048
  8. INDAPAMIDE [Concomitant]
     Dosage: 2.5 MILLIGRAM DAILY;
     Route: 048
  9. CODEINE [Concomitant]
     Indication: COUGH
     Dosage: AS NECESSARY
  10. MULTIVITAMINS [Concomitant]
  11. LEKOVIT CA [Concomitant]

REACTIONS (1)
  - Syncope [Recovered/Resolved]
